FAERS Safety Report 7035529 (Version 5)
Quarter: 2018Q2

REPORT INFORMATION
  Report Type: Spontaneous
  Country: JP (occurrence: JP)
  Receive Date: 20090629
  Receipt Date: 20180626
  Transmission Date: 20180711
  Serious: Yes (Other)
  Sender: FDA-Public Use
  Company Number: PHHY2008JP17674

PATIENT
  Age: 29 Year
  Sex: Male
  Weight: 90 kg

DRUGS (6)
  1. EXJADE [Suspect]
     Active Substance: DEFERASIROX
     Indication: IRON OVERLOAD
     Dosage: 1500 MG, QD
     Route: 048
     Dates: start: 20080624, end: 200807
  2. DESFERAL [Suspect]
     Active Substance: DEFEROXAMINE MESYLATE
     Indication: MYELODYSPLASTIC SYNDROME
     Dosage: 1000 MG, UNK
     Route: 030
     Dates: start: 200511
  3. EXJADE [Suspect]
     Active Substance: DEFERASIROX
     Dosage: 500 MG, QD
     Route: 048
     Dates: start: 200809
  4. NEORAL [Suspect]
     Active Substance: CYCLOSPORINE
     Indication: APLASTIC ANAEMIA
     Dosage: 200 MG, QD
     Route: 048
     Dates: end: 20081211
  5. NEORAL [Suspect]
     Active Substance: CYCLOSPORINE
     Indication: ANAEMIA
  6. CIPRO HC [Concomitant]
     Active Substance: CIPROFLOXACIN HYDROCHLORIDE\HYDROCORTISONE
     Indication: APLASTIC ANAEMIA
     Dosage: UNK
     Route: 065

REACTIONS (9)
  - Blood creatinine increased [Recovered/Resolved]
  - Disease progression [Unknown]
  - Serum ferritin increased [Unknown]
  - Aplastic anaemia [Not Recovered/Not Resolved]
  - Liver iron concentration increased [Unknown]
  - Anaemia [Unknown]
  - Iron overload [Unknown]
  - Renal impairment [Recovered/Resolved]
  - Hepatic function abnormal [Unknown]

NARRATIVE: CASE EVENT DATE: 2004
